FAERS Safety Report 9170650 (Version 2)
Quarter: 2013Q2

REPORT INFORMATION
  Report Type: Spontaneous
  Country: US (occurrence: None)
  Receive Date: 20130312
  Receipt Date: 20130415
  Transmission Date: 20140414
  Serious: Yes (Hospitalization)
  Sender: FDA-Public Use
  Company Number: ACO_34649_2013

PATIENT
  Age: 48 Year
  Sex: Female

DRUGS (6)
  1. AMPYRA [Suspect]
     Indication: PRODUCT USED FOR UNKNOWN INDICATION
     Route: 048
     Dates: start: 201210, end: 20130226
  2. REBIF (INTERFERON BETA-1A) [Concomitant]
  3. ZOLOFT (SERTRALINE HYDROCHLORIDE) [Concomitant]
  4. CRESTOR (ROSUVASTATIN CALCIUM) [Concomitant]
  5. RELPAX (ELETRIPTAN HYDROBROMIDE) [Concomitant]
  6. BACLOFEN (BACLOFEN) [Concomitant]

REACTIONS (2)
  - Grand mal convulsion [None]
  - Postictal state [None]
